FAERS Safety Report 4924023-9 (Version None)
Quarter: 2006Q1

REPORT INFORMATION
  Report Type: 
  Country: None (occurrence: None)
  Receive Date: 20060227
  Receipt Date: 20051214
  Transmission Date: 20060701
  Serious: Yes (Hospitalization)
  Sender: FDA-Public Use
  Company Number: US-MERCK-0512USA02372

PATIENT
  Age: 49 Year
  Sex: Female
  Weight: 89 kg

DRUGS (6)
  1. PAXIL [Suspect]
     Route: 065
  2. VIOXX [Suspect]
     Indication: POLYARTHRITIS
     Route: 048
     Dates: start: 20000614
  3. VIOXX [Suspect]
     Indication: PSORIASIS
     Route: 048
     Dates: start: 20000614
  4. PREMARIN [Concomitant]
     Route: 065
  5. PRILOSEC [Concomitant]
     Route: 048
  6. METOCLOPRAMIDE [Concomitant]
     Route: 065

REACTIONS (38)
  - ABNORMAL DREAMS [None]
  - ANGINA PECTORIS [None]
  - ASTHMA [None]
  - BRONCHITIS ACUTE [None]
  - CARDIAC FAILURE CONGESTIVE [None]
  - CAROTID ARTERY DISEASE [None]
  - CERVICOBRACHIAL SYNDROME [None]
  - CONSTIPATION [None]
  - CORONARY ARTERY DISEASE [None]
  - CYSTITIS [None]
  - DEHYDRATION [None]
  - DIABETES MELLITUS [None]
  - DIVERTICULITIS [None]
  - DYSPNOEA [None]
  - EMPHYSEMA [None]
  - EPISTAXIS [None]
  - FIBROMYALGIA [None]
  - GASTROOESOPHAGEAL REFLUX DISEASE [None]
  - HYPERHIDROSIS [None]
  - HYPERTENSION [None]
  - HYPOTENSION [None]
  - HYPOTHYROIDISM [None]
  - ISCHAEMIC CARDIOMYOPATHY [None]
  - MITRAL VALVE PROLAPSE [None]
  - MUSCLE SPASMS [None]
  - NECK PAIN [None]
  - ORAL DISCOMFORT [None]
  - OSTEOARTHRITIS [None]
  - PANIC ATTACK [None]
  - PERIPHERAL VASCULAR DISORDER [None]
  - RESTLESSNESS [None]
  - SHOULDER PAIN [None]
  - TOOTH ABSCESS [None]
  - TRANSIENT ISCHAEMIC ATTACK [None]
  - UPPER RESPIRATORY TRACT INFECTION [None]
  - URINARY TRACT INFECTION [None]
  - VERTIGO [None]
  - WEIGHT INCREASED [None]
